FAERS Safety Report 7768376-5 (Version None)
Quarter: 2011Q3

REPORT INFORMATION
  Report Type: 
  Country: None (occurrence: None)
  Receive Date: 20110922
  Receipt Date: 20110427
  Transmission Date: 20111222
  Serious: No
  Sender: FDA-Public Use
  Company Number: US-ASTRAZENECA-2011SE24895

PATIENT
  Age: 587 Month
  Sex: Female
  Weight: 98.4 kg

DRUGS (4)
  1. PERCOCET [Concomitant]
  2. SEROQUEL XR [Suspect]
     Indication: BIPOLAR DISORDER
     Route: 048
     Dates: start: 20100101
  3. SEROQUEL XR [Suspect]
     Indication: SLEEP DISORDER
     Route: 048
     Dates: start: 20100101
  4. SEROQUEL XR [Suspect]
     Indication: DEPRESSION
     Route: 048
     Dates: start: 20100101

REACTIONS (10)
  - NASOPHARYNGITIS [None]
  - HYPERSOMNIA [None]
  - OFF LABEL USE [None]
  - ABNORMAL DREAMS [None]
  - DRY THROAT [None]
  - WEIGHT INCREASED [None]
  - INCREASED APPETITE [None]
  - ABDOMINAL OPERATION [None]
  - HALLUCINATION [None]
  - PYREXIA [None]
